FAERS Safety Report 11975655 (Version 1)
Quarter: 2016Q1

REPORT INFORMATION
  Report Type: Spontaneous
  Country: BR (occurrence: BR)
  Receive Date: 20160129
  Receipt Date: 20160129
  Transmission Date: 20160526
  Serious: Yes (Other)
  Sender: FDA-Public Use
  Company Number: BR-ROCHE-1697688

PATIENT
  Sex: Female
  Weight: 61 kg

DRUGS (11)
  1. CORISTINA D [Concomitant]
  2. GELOL [Concomitant]
     Indication: OSTEOARTHRITIS
  3. SOMALIUM [Suspect]
     Active Substance: BROMAZEPAM
     Indication: PRODUCT USED FOR UNKNOWN INDICATION
     Route: 065
  4. NOAN [Suspect]
     Active Substance: DIAZEPAM
     Indication: PRODUCT USED FOR UNKNOWN INDICATION
     Route: 065
  5. CYCLOBENZAPRINE HYDROCHLORIDE. [Concomitant]
     Active Substance: CYCLOBENZAPRINE HYDROCHLORIDE
     Indication: ARTHRITIS
  6. CYCLOBENZAPRINE HYDROCHLORIDE. [Concomitant]
     Active Substance: CYCLOBENZAPRINE HYDROCHLORIDE
     Indication: OSTEOARTHRITIS
  7. URBANYL [Suspect]
     Active Substance: CLOBAZAM
     Indication: PRODUCT USED FOR UNKNOWN INDICATION
     Route: 065
  8. STUGERON [Concomitant]
     Active Substance: CINNARIZINE
     Indication: LABYRINTHITIS
     Route: 065
  9. EPAREMA [Concomitant]
     Indication: LIVER DISORDER
  10. VALIUM [Suspect]
     Active Substance: DIAZEPAM
     Indication: ANXIETY
     Route: 065
  11. GELOL [Concomitant]
     Indication: ARTHRITIS

REACTIONS (12)
  - Somnolence [Unknown]
  - Malaise [Recovered/Resolved]
  - Cataract [Not Recovered/Not Resolved]
  - Pain in extremity [Unknown]
  - Muscular weakness [Unknown]
  - Phobia [Unknown]
  - Drug ineffective [Unknown]
  - Tremor [Recovered/Resolved]
  - Mitral valve prolapse [Not Recovered/Not Resolved]
  - Hypertension [Not Recovered/Not Resolved]
  - Feeling cold [Recovered/Resolved]
  - Osteoporosis [Not Recovered/Not Resolved]
